FAERS Safety Report 8267616-6 (Version None)
Quarter: 2012Q2

REPORT INFORMATION
  Report Type: 
  Country: None (occurrence: None)
  Receive Date: 20120409
  Receipt Date: 20120328
  Transmission Date: 20120825
  Serious: Yes (Hospitalization)
  Sender: FDA-Public Use
  Company Number: US-ELI_LILLY_AND_COMPANY-US201203009408

PATIENT
  Sex: Female

DRUGS (8)
  1. VITAMIN TAB [Concomitant]
  2. CYMBALTA [Suspect]
     Indication: MIGRAINE
     Dosage: 60 MG, QD
     Dates: end: 20120201
  3. GABAPENTIN [Concomitant]
  4. OMEPRAZOLE [Concomitant]
     Dosage: 20 MG, UNK
  5. CYMBALTA [Suspect]
     Dosage: 30 MG, QD
     Dates: start: 20120202, end: 20120222
  6. CYMBALTA [Suspect]
     Dosage: 30 MG, QOD
     Dates: start: 20120223, end: 20120315
  7. ACETAMINOPHEN AND HYDROCODONE BITARTRATE [Concomitant]
     Indication: PAIN
     Dosage: 10/500
  8. FORTEO [Suspect]
     Dosage: 20 UG, UNK
     Dates: start: 20110717

REACTIONS (13)
  - DEPRESSION [None]
  - INTENTIONAL DRUG MISUSE [None]
  - FEELING ABNORMAL [None]
  - HYPERTENSION [None]
  - ANKLE FRACTURE [None]
  - DRUG WITHDRAWAL SYNDROME [None]
  - ANXIETY [None]
  - LARGE INTESTINE PERFORATION [None]
  - HYPERSOMNIA [None]
  - SPINAL FRACTURE [None]
  - OFF LABEL USE [None]
  - DECREASED APPETITE [None]
  - HEAD DISCOMFORT [None]
